FAERS Safety Report 20512320 (Version 2)
Quarter: 2022Q2

REPORT INFORMATION
  Report Type: Report from Study
  Country: AU (occurrence: AU)
  Receive Date: 20220224
  Receipt Date: 20220401
  Transmission Date: 20220721
  Serious: Yes (Death)
  Sender: FDA-Public Use
  Company Number: AU-KARYOPHARM-2022KPT000186

PATIENT
  Age: 86 Year
  Sex: Female

DRUGS (5)
  1. SELINEXOR [Suspect]
     Active Substance: SELINEXOR
     Indication: Diffuse large B-cell lymphoma
     Dosage: 60 MG
     Route: 048
     Dates: start: 20211220, end: 20211220
  2. NEBIVOLOL [Concomitant]
     Active Substance: NEBIVOLOL
     Dosage: 5 MG, IN THE MORNING (MANE)
  3. VALSARTAN [Concomitant]
     Active Substance: VALSARTAN
     Dosage: 80 MG, QD
  4. ATORVASTATIN [Concomitant]
     Active Substance: ATORVASTATIN
     Dosage: 40 MG, IN THE MORNING (MANE)
  5. THYROXINE [Concomitant]
     Active Substance: LEVOTHYROXINE
     Dosage: 100 MCG, QD

REACTIONS (1)
  - Diffuse large B-cell lymphoma [Fatal]
